FAERS Safety Report 4417983-6 (Version None)
Quarter: 2004Q3

REPORT INFORMATION
  Report Type: 
  Country: None (occurrence: None)
  Receive Date: 20040804
  Receipt Date: 20040714
  Transmission Date: 20050211
  Serious: No
  Sender: FDA-Public Use
  Company Number: A04200400653

PATIENT
  Sex: Male

DRUGS (4)
  1. ELOXATIN [Suspect]
     Indication: COLON CANCER
     Route: 041
     Dates: start: 20040701, end: 20040701
  2. ELOXATIN [Suspect]
     Indication: METASTATIC NEOPLASM
     Route: 041
     Dates: start: 20040701, end: 20040701
  3. SOTALEX MITE - (SOTALOL HYDROCHLORIDE) - TBLET - 80 MG [Suspect]
     Indication: ARRHYTHMIA
     Dosage: 80 MG BID
     Route: 048
     Dates: start: 20010101, end: 20040713
  4. ENALAPRIL VERLA (ENALAPRIL) [Concomitant]

REACTIONS (2)
  - CARDIAC ARREST [None]
  - VENTRICULAR EXTRASYSTOLES [None]
